FAERS Safety Report 5452202-3 (Version None)
Quarter: 2007Q3

REPORT INFORMATION
  Report Type: 
  Country: None (occurrence: None)
  Receive Date: 20070912
  Receipt Date: 20070905
  Transmission Date: 20080115
  Serious: Yes (Life-Threatening, Hospitalization)
  Sender: FDA-Public Use
  Company Number: SPV1-2007-02945

PATIENT
  Age: 21 Year
  Sex: Male

DRUGS (2)
  1. PENTASA [Suspect]
     Indication: COLITIS ULCERATIVE
     Dosage: 1 G, 4X/DAY; QID, ORAL
     Route: 048
     Dates: start: 20070217, end: 20070417
  2. PREDNISONE (CORTICOSTEROID NOS) [Concomitant]

REACTIONS (11)
  - CHEMICAL INJURY [None]
  - COLITIS [None]
  - DIARRHOEA HAEMORRHAGIC [None]
  - DUODENITIS [None]
  - GASTRITIS [None]
  - GENERAL PHYSICAL HEALTH DETERIORATION [None]
  - HAEMATEMESIS [None]
  - HYPERSENSITIVITY [None]
  - ILEITIS [None]
  - INFLAMMATORY BOWEL DISEASE [None]
  - MELAENA [None]
